FAERS Safety Report 21273532 (Version 2)
Quarter: 2022Q3

REPORT INFORMATION
  Report Type: Report from Study
  Country: FR (occurrence: None)
  Receive Date: 20220831
  Receipt Date: 20220926
  Transmission Date: 20221026
  Serious: Yes (Death)
  Sender: FDA-Public Use
  Company Number: 2022A299232

PATIENT
  Age: 688 Month
  Sex: Female
  Weight: 55 kg

DRUGS (3)
  1. EVUSHELD [Suspect]
     Active Substance: CILGAVIMAB\TIXAGEVIMAB
     Indication: COVID-19 prophylaxis
     Dosage: TIXAGEVIMAB 150 MG/CILGAVIMAB 150 MG AT ONCE/SINGLE ADMINISTRATION
     Route: 030
     Dates: start: 20220321, end: 20220321
  2. TACROLIMUS [Concomitant]
     Active Substance: TACROLIMUS
     Indication: Lung transplant
     Dosage: AT 3MG ON THE MORNING AND 2,5MG PER OS ON THE EVENING
     Dates: start: 20070517
  3. REPAGLINIDE [Concomitant]
     Active Substance: REPAGLINIDE
     Indication: Diabetes mellitus
     Dosage: AT 2MG ON THE MORNING AND 1,5MG ON THE EVENING PER OS
     Dates: start: 20070517

REACTIONS (2)
  - Lung neoplasm malignant [Fatal]
  - Acute respiratory failure [Fatal]

NARRATIVE: CASE EVENT DATE: 20220801
